FAERS Safety Report 7503646-7 (Version None)
Quarter: 2011Q1

REPORT INFORMATION
  Report Type: 
  Country: None (occurrence: None)
  Receive Date: 20110324
  Receipt Date: 20100402
  Transmission Date: 20110831
  Serious: Yes (Other)
  Sender: FDA-Public Use
  Company Number: 2010022780

PATIENT
  Sex: Female

DRUGS (7)
  1. ICAR-C (ICAR-C PLUS) [Concomitant]
  2. PRENEXA (PRENATAL VITAMINS) [Concomitant]
  3. MACROBID [Concomitant]
  4. RHO(D) IMMUNE GLOBULIN NOS [Suspect]
     Indication: FOETAL-MATERNAL HAEMORRHAGE
     Dosage: (300 UG QD, ANTEPARTUM DOSE), (3600 UG QD, 12 VIALS OVER 24 HOURS INTRAVENOUS (NOT OTHERWISE SPEC.)
     Route: 042
     Dates: start: 20090730, end: 20090730
  5. RHO(D) IMMUNE GLOBULIN NOS [Suspect]
     Indication: PROPHYLAXIS AGAINST RH ISOIMMUNISATION
     Dosage: (300 UG QD, ANTEPARTUM DOSE), (3600 UG QD, 12 VIALS OVER 24 HOURS INTRAVENOUS (NOT OTHERWISE SPEC.)
     Route: 042
     Dates: start: 20090730, end: 20090730
  6. RHO(D) IMMUNE GLOBULIN NOS [Suspect]
     Indication: FOETAL-MATERNAL HAEMORRHAGE
     Dosage: (300 UG QD, ANTEPARTUM DOSE), (3600 UG QD, 12 VIALS OVER 24 HOURS INTRAVENOUS (NOT OTHERWISE SPEC.)
     Route: 042
     Dates: start: 20091014, end: 20091015
  7. RHO(D) IMMUNE GLOBULIN NOS [Suspect]
     Indication: PROPHYLAXIS AGAINST RH ISOIMMUNISATION
     Dosage: (300 UG QD, ANTEPARTUM DOSE), (3600 UG QD, 12 VIALS OVER 24 HOURS INTRAVENOUS (NOT OTHERWISE SPEC.)
     Route: 042
     Dates: start: 20091014, end: 20091015

REACTIONS (2)
  - DRUG INEFFECTIVE [None]
  - RHESUS ANTIBODIES POSITIVE [None]
